FAERS Safety Report 18944072 (Version 3)
Quarter: 2021Q2

REPORT INFORMATION
  Report Type: Spontaneous
  Country: US (occurrence: US)
  Receive Date: 20210226
  Receipt Date: 20210408
  Transmission Date: 20210717
  Serious: No
  Sender: FDA-Public Use
  Company Number: US-AIMMUNE THERAPEUTICS, INC.-2021AIMT00061

PATIENT

DRUGS (3)
  1. PALFORZIA [Suspect]
     Active Substance: PEANUT
     Indication: FOOD ALLERGY
     Dosage: LEVEL 1, 1X/DAY
     Route: 048
     Dates: start: 20210222, end: 20210225
  2. PALFORZIA [Suspect]
     Active Substance: PEANUT
     Dosage: 6 MG, ONCE,LAST DOSE OF PALFORZIA TAKEN PRIOR TO ONSET OF ADVERSE EVENT
     Route: 048
     Dates: start: 20210225, end: 20210225
  3. PALFORZIA [Suspect]
     Active Substance: PEANUT
     Dosage: 12 MG, 12X/DAY
     Route: 048
     Dates: start: 20210308

REACTIONS (2)
  - Rash [Recovered/Resolved]
  - Chest discomfort [Recovered/Resolved]

NARRATIVE: CASE EVENT DATE: 20210225
